FAERS Safety Report 24177915 (Version 2)
Quarter: 2024Q3

REPORT INFORMATION
  Report Type: Spontaneous
  Country: US (occurrence: US)
  Receive Date: 20240806
  Receipt Date: 20240820
  Transmission Date: 20241017
  Serious: Yes (Hospitalization, Other)
  Sender: ALKEM
  Company Number: None

PATIENT
  Age: 13 Year
  Sex: Male

DRUGS (10)
  1. TACROLIMUS [Suspect]
     Active Substance: TACROLIMUS
     Indication: Immunosuppressant drug therapy
     Dosage: 2 MILLIGRAM, QD
     Route: 065
  2. TACROLIMUS [Suspect]
     Active Substance: TACROLIMUS
     Dosage: 1 MILLIGRAM (REDUCED DOSE)
     Route: 065
  3. TACROLIMUS [Suspect]
     Active Substance: TACROLIMUS
     Dosage: 1 MILLIGRAM
     Route: 065
  4. PIPERACILLIN SODIUM\TAZOBACTAM SODIUM [Suspect]
     Active Substance: PIPERACILLIN SODIUM\TAZOBACTAM SODIUM
     Indication: Acute kidney injury
     Dosage: UNK
     Route: 065
  5. PREDNISONE [Suspect]
     Active Substance: PREDNISONE
     Indication: Epstein-Barr viraemia
     Dosage: 40 MILLIGRAM, QD
     Route: 065
  6. CETIRIZINE [Concomitant]
     Active Substance: CETIRIZINE HYDROCHLORIDE
     Indication: Nausea
     Dosage: 10 MILLIGRAM, OD (ORAL TABLET)
     Route: 048
  7. CETIRIZINE [Concomitant]
     Active Substance: CETIRIZINE HYDROCHLORIDE
     Indication: Vomiting
  8. ONDANSETRON [Concomitant]
     Active Substance: ONDANSETRON
     Indication: Nausea
     Dosage: 4 MILLIGRAM (ORAL TABLET AS NEEDED)
     Route: 048
  9. ONDANSETRON [Concomitant]
     Active Substance: ONDANSETRON
     Indication: Vomiting
  10. RIZATRIPTAN [Concomitant]
     Active Substance: RIZATRIPTAN
     Indication: Headache
     Dosage: 10 MILLIGRAM (TAKEN AS NEEDED)
     Route: 065

REACTIONS (9)
  - Immunosuppressant drug level increased [Unknown]
  - Acute kidney injury [Unknown]
  - Ascites [Unknown]
  - Epstein-Barr virus associated lymphoproliferative disorder [Recovered/Resolved]
  - Epstein-Barr viraemia [Unknown]
  - Nephropathy toxic [Unknown]
  - Pericardial effusion [Unknown]
  - Pleural effusion [Unknown]
  - Solid organ transplant rejection [Unknown]
